FAERS Safety Report 6044521-7 (Version None)
Quarter: 2009Q1

REPORT INFORMATION
  Report Type: 
  Country: None (occurrence: None)
  Receive Date: 20090120
  Receipt Date: 20090109
  Transmission Date: 20090719
  Serious: Yes (Other)
  Sender: FDA-Public Use
  Company Number: IT-ABBOTT-08P-083-0433224-00

PATIENT
  Sex: Female

DRUGS (1)
  1. FERRO-GRAD [Suspect]
     Indication: ANAEMIA
     Dates: start: 20071128, end: 20071128

REACTIONS (2)
  - DYSPNOEA [None]
  - VOMITING [None]
